FAERS Safety Report 7757387-1 (Version None)
Quarter: 2011Q3

REPORT INFORMATION
  Report Type: 
  Country: None (occurrence: None)
  Receive Date: 20110916
  Receipt Date: 20110907
  Transmission Date: 20111222
  Serious: Yes (Hospitalization)
  Sender: FDA-Public Use
  Company Number: US-ACTELION-A-NJ2011-53349

PATIENT

DRUGS (3)
  1. ADCIRCA [Concomitant]
  2. VENTAVIS [Suspect]
     Indication: PULMONARY ARTERIAL HYPERTENSION
     Dosage: UNK
     Route: 055
     Dates: start: 20070613, end: 20110801
  3. VENTAVIS [Suspect]
     Dosage: UNK
     Route: 048
     Dates: start: 20110101

REACTIONS (2)
  - OEDEMA PERIPHERAL [None]
  - SKIN DISCOLOURATION [None]
